FAERS Safety Report 10445746 (Version 7)
Quarter: 2019Q3

REPORT INFORMATION
  Report Type: Report from Study
  Country: US (occurrence: US)
  Receive Date: 20140910
  Receipt Date: 20190704
  Transmission Date: 20191004
  Serious: Yes (Hospitalization, Other)
  Sender: FDA-Public Use
  Company Number: US-SA-2014SA122747

PATIENT
  Age: 41 Year
  Sex: Female
  Weight: 73.48 kg

DRUGS (3)
  1. TERIFLUNOMIDE. [Suspect]
     Active Substance: TERIFLUNOMIDE
     Indication: RELAPSING-REMITTING MULTIPLE SCLEROSIS
     Dosage: 14 MG,QD
     Route: 048
     Dates: start: 20141201, end: 20180221
  2. AMITRIPTYLINE [Concomitant]
     Active Substance: AMITRIPTYLINE
     Indication: ANTIDEPRESSANT THERAPY
     Dosage: 25 MG,HS
     Dates: start: 2012
  3. TERIFLUNOMIDE. [Suspect]
     Active Substance: TERIFLUNOMIDE
     Indication: MULTIPLE SCLEROSIS
     Dosage: 7 MG,QD
     Route: 048
     Dates: start: 20140813, end: 20141130

REACTIONS (11)
  - Memory impairment [Not Recovered/Not Resolved]
  - Feeling abnormal [Recovered/Resolved]
  - Ear swelling [Not Recovered/Not Resolved]
  - Fall [Unknown]
  - Hypoaesthesia [Not Recovered/Not Resolved]
  - Muscle tightness [Unknown]
  - Hypoaesthesia [Recovered/Resolved]
  - Multiple sclerosis relapse [Recovered/Resolved]
  - Nasopharyngitis [Not Recovered/Not Resolved]
  - Sensory loss [Recovered/Resolved]
  - Back pain [Unknown]

NARRATIVE: CASE EVENT DATE: 201409
